FAERS Safety Report 25535565 (Version 1)
Quarter: 2025Q3

REPORT INFORMATION
  Report Type: Report from Study
  Country: CA (occurrence: CA)
  Receive Date: 20250709
  Receipt Date: 20250709
  Transmission Date: 20251021
  Serious: Yes (Other)
  Sender: ABBVIE
  Company Number: CA-ABBVIE-6360608

PATIENT
  Age: 47 Year
  Sex: Male

DRUGS (1)
  1. SKYRIZI [Suspect]
     Active Substance: RISANKIZUMAB-RZAA
     Indication: Crohn^s disease
     Dosage: DOSE FORM: SOLUTION FOR INJECTION IN PRE-FILLED INJECTOR
     Route: 058
     Dates: start: 202306

REACTIONS (14)
  - Large intestine polyp [Unknown]
  - Rectal haemorrhage [Unknown]
  - Gastric antral vascular ectasia [Unknown]
  - Iron deficiency anaemia [Unknown]
  - Crohn^s disease [Unknown]
  - Hiatus hernia [Unknown]
  - Ileal stenosis [Unknown]
  - Gastrointestinal scarring [Unknown]
  - Ulcer [Recovered/Resolved]
  - Chronic gastritis [Unknown]
  - Inflammation [Unknown]
  - Haemorrhoids [Unknown]
  - Frequent bowel movements [Unknown]
  - Haematochezia [Unknown]
